FAERS Safety Report 15534992 (Version 1)
Quarter: 2018Q4

REPORT INFORMATION
  Report Type: Spontaneous
  Country: GB (occurrence: GB)
  Receive Date: 20181022
  Receipt Date: 20181022
  Transmission Date: 20190205
  Serious: Yes (Other)
  Sender: FDA-Public Use
  Company Number: GB-ROCHE-2201140

PATIENT
  Age: 35 Year
  Sex: Female

DRUGS (1)
  1. RANIBIZUMAB. [Suspect]
     Active Substance: RANIBIZUMAB
     Indication: MACULAR OEDEMA
     Dosage: UNK, QMO (IN RIGHT EYE)
     Route: 031

REACTIONS (2)
  - Disease recurrence [Recovered/Resolved]
  - Macular oedema [Recovered/Resolved]
